FAERS Safety Report 5335170-4 (Version None)
Quarter: 2007Q2

REPORT INFORMATION
  Report Type: 
  Country: None (occurrence: None)
  Receive Date: 20070525
  Receipt Date: 20070516
  Transmission Date: 20071010
  Serious: Yes (Other)
  Sender: FDA-Public Use
  Company Number: US-PFIZER INC-2007019361

PATIENT
  Sex: Female
  Weight: 41.5 kg

DRUGS (5)
  1. ZITHROMAX [Suspect]
     Indication: ABDOMINAL PAIN
  2. ZITHROMAX [Suspect]
     Indication: DIARRHOEA
  3. ZITHROMAX [Suspect]
     Indication: PYREXIA
  4. MOTRIN [Concomitant]
  5. CHANTIX [Concomitant]

REACTIONS (1)
  - SERUM SICKNESS [None]
